FAERS Safety Report 6298718-1 (Version None)
Quarter: 2009Q3

REPORT INFORMATION
  Report Type: 
  Country: None (occurrence: None)
  Receive Date: 20090806
  Receipt Date: 20090730
  Transmission Date: 20100115
  Serious: Yes (Other)
  Sender: FDA-Public Use
  Company Number: US-BIOGENIDEC-2009BI020022

PATIENT
  Sex: Female

DRUGS (1)
  1. TYSABRI [Suspect]
     Indication: MULTIPLE SCLEROSIS
     Route: 042
     Dates: start: 20070726

REACTIONS (5)
  - DEEP VEIN THROMBOSIS [None]
  - EPISTAXIS [None]
  - HERPES ZOSTER [None]
  - NASAL SEPTUM PERFORATION [None]
  - PULMONARY THROMBOSIS [None]
